FAERS Safety Report 7060398-5 (Version None)
Quarter: 2010Q4

REPORT INFORMATION
  Report Type: 
  Country: None (occurrence: None)
  Receive Date: 20101025
  Receipt Date: 20100902
  Transmission Date: 20110411
  Serious: No
  Sender: FDA-Public Use
  Company Number: US-BAYER-201021075BCC

PATIENT
  Sex: Male
  Weight: 68 kg

DRUGS (2)
  1. ALEVE (CAPLET) [Suspect]
     Indication: MUSCULOSKELETAL PAIN
     Dosage: TOTAL DAILY DOSE: 440 MG  UNIT DOSE: 220 MG
     Route: 048
  2. ASPIRIN [Concomitant]

REACTIONS (2)
  - ABDOMINAL DISCOMFORT [None]
  - FEELING JITTERY [None]
